FAERS Safety Report 4443181-6 (Version None)
Quarter: 2004Q3

REPORT INFORMATION
  Report Type: 
  Country: None (occurrence: None)
  Receive Date: 20040901
  Receipt Date: 20040820
  Transmission Date: 20050211
  Serious: Yes (Other)
  Sender: FDA-Public Use
  Company Number: 2004058785

PATIENT
  Sex: Female

DRUGS (7)
  1. DILANTIN [Suspect]
     Indication: CONVULSION
     Dates: end: 20040819
  2. NEURONTIN [Suspect]
     Indication: NEUROPATHIC PAIN
     Dosage: 600 MG (100 MG , 1 IN 1 D) ORAL
     Route: 048
  3. IRBESARTAN [Concomitant]
  4. INSULIN [Concomitant]
  5. LEVOTHYROXINE SODIUM [Concomitant]
  6. LANSOPRAZOLE [Concomitant]
  7. ROSUVASTATIN [Concomitant]

REACTIONS (2)
  - CHEST PAIN [None]
  - TACHYCARDIA [None]
